FAERS Safety Report 22344591 (Version 2)
Quarter: 2023Q2

REPORT INFORMATION
  Report Type: Report from Study
  Country: US (occurrence: US)
  Receive Date: 20230519
  Receipt Date: 20230619
  Transmission Date: 20230722
  Serious: Yes (Other)
  Sender: FDA-Public Use
  Company Number: US-002147023-NVSC2023US114146

PATIENT
  Sex: Male

DRUGS (1)
  1. KISQALI [Suspect]
     Active Substance: RIBOCICLIB
     Indication: Product used for unknown indication
     Dosage: UNK
     Route: 048

REACTIONS (7)
  - Erectile dysfunction [Unknown]
  - Localised infection [Unknown]
  - Flatulence [Unknown]
  - White blood cell count decreased [Unknown]
  - Constipation [Unknown]
  - Pruritus [Unknown]
  - Dyspnoea [Unknown]
